FAERS Safety Report 8173688-X (Version None)
Quarter: 2012Q1

REPORT INFORMATION
  Report Type: 
  Country: None (occurrence: None)
  Receive Date: 20120224
  Receipt Date: 20120214
  Transmission Date: 20120608
  Serious: Yes (Hospitalization, Other)
  Sender: FDA-Public Use
  Company Number: ACO_29396_2012

PATIENT
  Age: 60 Year
  Sex: Female

DRUGS (4)
  1. MIRTAZAPINE [Concomitant]
  2. AMPYRA [Suspect]
     Indication: PRODUCT USED FOR UNKNOWN INDICATION
     Dosage: 10 MG,  Q 12 HRS
     Dates: start: 20110818
  3. COPAXONE [Concomitant]
  4. ZOLPIDEM TARTRATE [Concomitant]

REACTIONS (3)
  - KIDNEY INFECTION [None]
  - CERVIX CARCINOMA [None]
  - URINARY TRACT INFECTION [None]
